FAERS Safety Report 7130785-5 (Version None)
Quarter: 2010Q4

REPORT INFORMATION
  Report Type: 
  Country: None (occurrence: None)
  Receive Date: 20101201
  Receipt Date: 20091125
  Transmission Date: 20110411
  Serious: Yes (Other)
  Sender: FDA-Public Use
  Company Number: AU-ROCHE-741689

PATIENT

DRUGS (1)
  1. ACTEMRA [Suspect]
     Dosage: FORM:INFUSION
     Route: 065

REACTIONS (3)
  - MALAISE [None]
  - RASH [None]
  - TACHYCARDIA [None]
